FAERS Safety Report 6137145-4 (Version None)
Quarter: 2009Q1

REPORT INFORMATION
  Report Type: 
  Country: None (occurrence: None)
  Receive Date: 20090326
  Receipt Date: 20090326
  Transmission Date: 20090719
  Serious: Yes (Life-Threatening, Hospitalization, Disabling)
  Sender: FDA-Public Use
  Company Number: None

PATIENT
  Age: 71 Year
  Sex: Female
  Weight: 122 kg

DRUGS (10)
  1. LOVENOX [Suspect]
     Indication: THROMBOSIS PROPHYLAXIS
     Dosage: 40MG DAILY SQ
     Route: 058
     Dates: start: 20090224, end: 20090305
  2. INSULIN GLARGINE [Concomitant]
  3. INSULIN ASPART [Concomitant]
  4. DOCUSATE [Concomitant]
  5. PROTONIX [Concomitant]
  6. LIPITOR [Concomitant]
  7. LEVOTHYROXINE SODIUM [Concomitant]
  8. CARVEDILOL [Concomitant]
  9. HYDROCHLOROTHIAZIDE [Concomitant]
  10. LOSARTAN POTASSIUM [Concomitant]

REACTIONS (1)
  - HEPARIN-INDUCED THROMBOCYTOPENIA [None]
